FAERS Safety Report 15295409 (Version 1)
Quarter: 2018Q3

REPORT INFORMATION
  Report Type: Spontaneous
  Country: US (occurrence: US)
  Receive Date: 20180807
  Receipt Date: 20180807
  Transmission Date: 20181010
  Serious: No
  Sender: FDA-Public Use
  Company Number: None

PATIENT
  Age: 50 Year
  Sex: Female

DRUGS (1)
  1. COPAXONE [Suspect]
     Active Substance: GLATIRAMER ACETATE

REACTIONS (6)
  - Injection site reaction [None]
  - Injection site erythema [None]
  - Injection site pruritus [None]
  - Injection site rash [None]
  - Dyspnoea [None]
  - Inability to afford medication [None]

NARRATIVE: CASE EVENT DATE: 20130807
